FAERS Safety Report 6152997-X (Version None)
Quarter: 2009Q2

REPORT INFORMATION
  Report Type: 
  Country: None (occurrence: None)
  Receive Date: 20090413
  Receipt Date: 20090403
  Transmission Date: 20091009
  Serious: Yes (Other)
  Sender: FDA-Public Use
  Company Number: A0769774A

PATIENT
  Age: 24 Year
  Sex: Female

DRUGS (3)
  1. TREXIMET [Suspect]
     Indication: DIZZINESS
     Dosage: 85MG VARIABLE DOSE
     Route: 048
     Dates: start: 20090217, end: 20090217
  2. THYROID MEDICATION [Concomitant]
  3. BIRTH CONTROL [Concomitant]

REACTIONS (2)
  - DIZZINESS [None]
  - FEELING ABNORMAL [None]
